FAERS Safety Report 4327915-7 (Version None)
Quarter: 2004Q1

REPORT INFORMATION
  Report Type: 
  Country: None (occurrence: None)
  Receive Date: 20040325
  Receipt Date: 20040316
  Transmission Date: 20041129
  Serious: Yes (Life-Threatening)
  Sender: FDA-Public Use
  Company Number: 2004AP01790

PATIENT
  Age: 47 Year
  Sex: Female

DRUGS (2)
  1. NOLVADEX [Suspect]
     Indication: BREAST CANCER
     Dosage: 20 MG DAILY PO
     Route: 048
  2. RADIATION THERAPY [Concomitant]

REACTIONS (1)
  - INTERSTITIAL LUNG DISEASE [None]
